FAERS Safety Report 9113121 (Version 3)
Quarter: 2013Q2

REPORT INFORMATION
  Report Type: Spontaneous
  Country: ES (occurrence: ES)
  Receive Date: 20130211
  Receipt Date: 20130605
  Transmission Date: 20140414
  Serious: Yes (Hospitalization)
  Sender: FDA-Public Use
  Company Number: ES-009507513-1302ESP002077

PATIENT
  Age: 78 Year
  Sex: Male
  Weight: 68 kg

DRUGS (8)
  1. JANUVIA [Suspect]
     Indication: TYPE 2 DIABETES MELLITUS
     Dosage: 50 MG, QD
     Route: 048
     Dates: start: 20121015, end: 20121119
  2. REPAGLINIDE [Concomitant]
     Indication: DIABETES MELLITUS
  3. DIANBEN [Concomitant]
     Indication: DIABETES MELLITUS
     Dosage: 850 MG, BID
  4. OMEPRAZOLE [Concomitant]
     Dosage: UNK
  5. TAMSULOSIN HYDROCHLORIDE [Concomitant]
     Indication: BENIGN PROSTATIC HYPERPLASIA
     Dosage: 0.40 MG, QD
     Route: 048
  6. SIMVASTATIN [Concomitant]
     Indication: HYPERCHOLESTEROLAEMIA
     Dosage: 10 MG, QD
  7. ESIDREX [Concomitant]
     Indication: HYPERTENSION
  8. ACOVIL [Concomitant]
     Indication: HYPERTENSION
     Dosage: 10 MG, QD

REACTIONS (3)
  - Pancreatic abscess [Recovered/Resolved]
  - Pancreatitis acute [Recovered/Resolved]
  - Pancreatic abscess [Recovered/Resolved]
